FAERS Safety Report 8310352-8 (Version None)
Quarter: 2012Q2

REPORT INFORMATION
  Report Type: 
  Country: None (occurrence: None)
  Receive Date: 20120425
  Receipt Date: 20120417
  Transmission Date: 20120825
  Serious: Yes (Other)
  Sender: FDA-Public Use
  Company Number: DE-BAYER-2012-037526

PATIENT
  Sex: Female

DRUGS (1)
  1. ESTRADIOL VALERATE/DIENOGEST [Suspect]
     Dosage: UNK
     Route: 064
     Dates: start: 20100205, end: 20100315

REACTIONS (1)
  - CARDIAC DISORDER [None]
